FAERS Safety Report 6347031-2 (Version None)
Quarter: 2009Q3

REPORT INFORMATION
  Report Type: 
  Country: None (occurrence: None)
  Receive Date: 20090909
  Receipt Date: 20090909
  Transmission Date: 20100115
  Serious: Yes (Hospitalization, Disabling)
  Sender: FDA-Public Use
  Company Number: None

PATIENT
  Age: 20 Year
  Sex: Female
  Weight: 63.5036 kg

DRUGS (2)
  1. CLINDAMYCIN [Suspect]
     Indication: TOOTH INFECTION
     Dosage: 300MG /28 CAP 1 EVERY 6 HOURS PO
     Route: 048
     Dates: start: 20090822, end: 20090825
  2. CLINDAMYCIN [Suspect]
     Indication: TOOTH INFECTION
     Dosage: 300MG /28 CAP 1 EVERY 6 HOURS PO
     Route: 048
     Dates: start: 20090901, end: 20090902

REACTIONS (4)
  - PAIN IN EXTREMITY [None]
  - RASH ERYTHEMATOUS [None]
  - SENSORY LOSS [None]
  - SKIN EXFOLIATION [None]
